FAERS Safety Report 11330069 (Version 1)
Quarter: 2015Q3

REPORT INFORMATION
  Report Type: Report from Study
  Country: US (occurrence: US)
  Receive Date: 20150803
  Receipt Date: 20150803
  Transmission Date: 20151125
  Serious: Yes (Hospitalization, Other)
  Sender: FDA-Public Use
  Company Number: US-GILEAD-2015-0165378

PATIENT
  Age: 81 Year
  Sex: Male

DRUGS (1)
  1. IDELALISIB [Suspect]
     Active Substance: IDELALISIB
     Indication: B-CELL SMALL LYMPHOCYTIC LYMPHOMA
     Dosage: 150 MG, BID
     Route: 048
     Dates: start: 20150616, end: 20150714

REACTIONS (4)
  - Fatigue [Recovering/Resolving]
  - Pneumonia [Recovering/Resolving]
  - Staphylococcal infection [Recovering/Resolving]
  - Tongue ulceration [Recovered/Resolved]

NARRATIVE: CASE EVENT DATE: 201507
